FAERS Safety Report 10686426 (Version 2)
Quarter: 2015Q1

REPORT INFORMATION
  Report Type: Spontaneous
  Country: BR (occurrence: BR)
  Receive Date: 20141231
  Receipt Date: 20150313
  Transmission Date: 20150720
  Serious: Yes (Other)
  Sender: FDA-Public Use
  Company Number: BR-ASTRAZENECA-2014SE98792

PATIENT
  Sex: Female

DRUGS (9)
  1. ASPIRINA PREVENT [Concomitant]
     Active Substance: ASPIRIN
     Route: 048
  2. DIOVAN [Concomitant]
     Active Substance: VALSARTAN
     Indication: HYPERTENSION
     Route: 048
  3. CRESTOR [Suspect]
     Active Substance: ROSUVASTATIN CALCIUM
     Indication: BLOOD CHOLESTEROL INCREASED
     Route: 048
  4. SUSTRATE [Concomitant]
     Active Substance: PROPATYL NITRATE
     Indication: PAIN
     Dosage: AS REQUIRED
     Route: 048
  5. PANTOPRAZOLE [Concomitant]
     Active Substance: PANTOPRAZOLE SODIUM
     Indication: GASTROOESOPHAGEAL REFLUX DISEASE
     Route: 048
  6. BRILINTA [Suspect]
     Active Substance: TICAGRELOR
     Route: 048
     Dates: start: 201412, end: 201412
  7. RIVOTRIL [Concomitant]
     Active Substance: CLONAZEPAM
     Route: 048
  8. BRILINTA [Suspect]
     Active Substance: TICAGRELOR
     Dosage: TWO TIMES A DAY
     Route: 048
  9. PANTOPRAZOLE [Concomitant]
     Active Substance: PANTOPRAZOLE SODIUM
     Indication: GASTROINTESTINAL DISORDER
     Route: 048

REACTIONS (3)
  - Arterial occlusive disease [Recovered/Resolved]
  - Heart injury [Unknown]
  - Off label use [Recovered/Resolved]

NARRATIVE: CASE EVENT DATE: 201412
